FAERS Safety Report 18602854 (Version 2)
Quarter: 2020Q4

REPORT INFORMATION
  Report Type: Spontaneous
  Country: US (occurrence: US)
  Receive Date: 20201210
  Receipt Date: 20201215
  Transmission Date: 20210114
  Serious: Yes (Hospitalization, Other)
  Sender: FDA-Public Use
  Company Number: US-ASTRAZENECA-2020SF63625

PATIENT
  Sex: Male
  Weight: 100.2 kg

DRUGS (1)
  1. BYDUREON [Suspect]
     Active Substance: EXENATIDE
     Indication: TYPE 2 DIABETES MELLITUS
     Route: 058

REACTIONS (6)
  - Metastases to lung [Unknown]
  - Inguinal hernia [Recovering/Resolving]
  - Device mechanical issue [Unknown]
  - Renal cancer [Unknown]
  - Orchitis noninfective [Recovering/Resolving]
  - Wrong technique in device usage process [Unknown]
